FAERS Safety Report 6508737-5 (Version None)
Quarter: 2009Q4

REPORT INFORMATION
  Report Type: 
  Country: None (occurrence: None)
  Receive Date: 20091221
  Receipt Date: 20090720
  Transmission Date: 20100525
  Serious: No
  Sender: FDA-Public Use
  Company Number: US-ASTRAZENECA-2009SE05511

PATIENT
  Age: 666 Month
  Sex: Female
  Weight: 65.8 kg

DRUGS (4)
  1. CRESTOR [Suspect]
     Indication: BLOOD CHOLESTEROL INCREASED
     Route: 048
     Dates: start: 20090401
  2. CRESTOR [Suspect]
     Route: 048
     Dates: start: 20090101
  3. ZOLOFT [Concomitant]
  4. CALCIUM [Concomitant]

REACTIONS (1)
  - BLOOD POTASSIUM INCREASED [None]
